FAERS Safety Report 6545336-3 (Version None)
Quarter: 2010Q1

REPORT INFORMATION
  Report Type: 
  Country: None (occurrence: None)
  Receive Date: 20100114
  Receipt Date: 20090914
  Transmission Date: 20100710
  Serious: No
  Sender: FDA-Public Use
  Company Number: 2009BM000222

PATIENT
  Age: 49 Year
  Sex: Female
  Weight: 105.2345 kg

DRUGS (10)
  1. KUVAN [Suspect]
     Indication: PHENYLKETONURIA
     Dosage: 2200 MG;QD;PO ;2200 MG;QD;PO
     Route: 048
     Dates: start: 20080101, end: 20090701
  2. KUVAN [Suspect]
     Indication: PHENYLKETONURIA
     Dosage: 2200 MG;QD;PO ;2200 MG;QD;PO
     Route: 048
     Dates: start: 20080901, end: 20090908
  3. KUVAN [Suspect]
  4. HYDROCODONE [Concomitant]
  5. ATENOLOL [Concomitant]
  6. XANAX [Concomitant]
  7. FUROSEMIDE [Concomitant]
  8. MELOXICAM [Concomitant]
  9. PAMELOR [Concomitant]
  10. SERTRALINE [Concomitant]

REACTIONS (11)
  - ABDOMINAL DISTENSION [None]
  - ABDOMINAL PAIN UPPER [None]
  - BOWEL MOVEMENT IRREGULARITY [None]
  - DEFAECATION URGENCY [None]
  - DIARRHOEA [None]
  - FAECAL INCONTINENCE [None]
  - FLATULENCE [None]
  - GASTROINTESTINAL DISORDER [None]
  - INSOMNIA [None]
  - TOOTH EXTRACTION [None]
  - WEIGHT DECREASED [None]
